FAERS Safety Report 21348971 (Version 1)
Quarter: 2022Q3

REPORT INFORMATION
  Report Type: Report from Study
  Country: CA (occurrence: CA)
  Receive Date: 20220919
  Receipt Date: 20220919
  Transmission Date: 20221026
  Serious: Yes (Hospitalization)
  Sender: FDA-Public Use
  Company Number: CA-China IPSEN SC-2022-26050

PATIENT
  Age: 54 Year
  Sex: Female

DRUGS (8)
  1. LANREOTIDE ACETATE [Suspect]
     Active Substance: LANREOTIDE ACETATE
     Indication: Neuroendocrine tumour
     Dosage: 120MG EVERY 4 WEEKS
     Route: 058
     Dates: start: 20220624
  2. TELMISARTAN [Concomitant]
     Active Substance: TELMISARTAN
  3. PANTOPRAZOLE MAGNESIUM [Concomitant]
     Active Substance: PANTOPRAZOLE MAGNESIUM
  4. LETROZOLE [Concomitant]
     Active Substance: LETROZOLE
  5. ONDANSETRON [Concomitant]
     Active Substance: ONDANSETRON
     Dates: start: 202203, end: 2022
  6. BISOPROLOL [Concomitant]
     Active Substance: BISOPROLOL
  7. SPIROTONE [Concomitant]
  8. SUCRALFATE [Concomitant]
     Active Substance: SUCRALFATE

REACTIONS (1)
  - Blood calcium increased [Unknown]

NARRATIVE: CASE EVENT DATE: 20220101
